FAERS Safety Report 25479505 (Version 1)
Quarter: 2025Q2

REPORT INFORMATION
  Report Type: Spontaneous
  Country: US (occurrence: US)
  Receive Date: 20250625
  Receipt Date: 20250625
  Transmission Date: 20250717
  Serious: No
  Sender: SANOFI AVENTIS
  Company Number: US-SANOFI-02561567

PATIENT
  Age: 78 Year
  Sex: Female

DRUGS (5)
  1. LANTUS SOLOSTAR [Suspect]
     Active Substance: INSULIN GLARGINE
     Indication: Type 2 diabetes mellitus
     Dosage: 10 IU, QD
     Route: 065
     Dates: start: 202504, end: 2025
  2. LANTUS SOLOSTAR [Suspect]
     Active Substance: INSULIN GLARGINE
     Dosage: 1 IU, QD
     Route: 065
     Dates: start: 2025, end: 2025
  3. LANTUS SOLOSTAR [Suspect]
     Active Substance: INSULIN GLARGINE
     Dosage: 7 IU HS
     Route: 065
     Dates: start: 2025
  4. GLIPIZIDE [Suspect]
     Active Substance: GLIPIZIDE
     Indication: Type 2 diabetes mellitus
     Dosage: UNK QAM, QD
     Route: 065
     Dates: end: 2025
  5. JANUMET [Suspect]
     Active Substance: METFORMIN HYDROCHLORIDE\SITAGLIPTIN PHOSPHATE
     Indication: Type 2 diabetes mellitus
     Route: 065

REACTIONS (4)
  - Malaise [Unknown]
  - Blood glucose increased [Unknown]
  - Hypoglycaemia [Unknown]
  - Product storage error [Unknown]

NARRATIVE: CASE EVENT DATE: 20250101
